FAERS Safety Report 25134952 (Version 3)
Quarter: 2025Q2

REPORT INFORMATION
  Report Type: Spontaneous
  Country: US (occurrence: US)
  Receive Date: 20250328
  Receipt Date: 20250407
  Transmission Date: 20250716
  Serious: Yes (Hospitalization, Other)
  Sender: GLAXOSMITHKLINE
  Company Number: US-GSK-US2025032958

PATIENT
  Sex: Female

DRUGS (1)
  1. NUCALA [Suspect]
     Active Substance: MEPOLIZUMAB
     Indication: Asthma
     Dates: end: 20241231

REACTIONS (5)
  - Pneumonia [Unknown]
  - Illness [Not Recovered/Not Resolved]
  - Hepatic lesion [Unknown]
  - Infection [Unknown]
  - Product dose omission issue [Unknown]
